FAERS Safety Report 15723713 (Version 3)
Quarter: 2018Q4

REPORT INFORMATION
  Report Type: Spontaneous
  Country: BR (occurrence: BR)
  Receive Date: 20181214
  Receipt Date: 20181226
  Transmission Date: 20190205
  Serious: Yes (Other)
  Sender: FDA-Public Use
  Company Number: BR-PFIZER INC-2018403907

PATIENT
  Age: 48 Year
  Sex: Male

DRUGS (3)
  1. LORAX [Suspect]
     Active Substance: LORAZEPAM
     Indication: PANIC DISORDER
  2. LORAX [Suspect]
     Active Substance: LORAZEPAM
     Indication: ANXIETY
     Dosage: 2 MG, 1X/DAY AT NIGHT
  3. LORAX [Suspect]
     Active Substance: LORAZEPAM
     Indication: DEPRESSION

REACTIONS (10)
  - Nervousness [Recovered/Resolved]
  - Bursitis [Unknown]
  - Insomnia [Recovered/Resolved]
  - Hypertension [Recovered/Resolved]
  - Arthritis [Unknown]
  - Impatience [Not Recovered/Not Resolved]
  - Headache [Unknown]
  - Dizziness [Unknown]
  - Neoplasm recurrence [Unknown]
  - Prostate cancer [Unknown]

NARRATIVE: CASE EVENT DATE: 2008
